FAERS Safety Report 19893720 (Version 2)
Quarter: 2021Q4

REPORT INFORMATION
  Report Type: Spontaneous
  Country: JP (occurrence: JP)
  Receive Date: 20210929
  Receipt Date: 20211012
  Transmission Date: 20220303
  Serious: Yes (Other)
  Sender: FDA-Public Use
  Company Number: JP-SUN PHARMACEUTICAL INDUSTRIES LTD-2021R1-312433

PATIENT
  Age: 32 Year
  Sex: Female

DRUGS (2)
  1. PHENYTOIN [Suspect]
     Active Substance: PHENYTOIN
     Indication: Frontal lobe epilepsy
     Dosage: UNK (200MG)
     Route: 065
  2. VALPROIC ACID [Suspect]
     Active Substance: VALPROIC ACID
     Indication: Frontal lobe epilepsy
     Dosage: UNK (800MG)
     Route: 065

REACTIONS (3)
  - Heart rate variability decreased [Unknown]
  - Exposure during pregnancy [Unknown]
  - Live birth [Unknown]
